FAERS Safety Report 15150111 (Version 1)
Quarter: 2018Q3

REPORT INFORMATION
  Report Type: Spontaneous
  Country: US (occurrence: US)
  Receive Date: 20180716
  Receipt Date: 20180716
  Transmission Date: 20181010
  Serious: Yes (Hospitalization)
  Sender: FDA-Public Use
  Company Number: US-JNJFOC-20180717646

PATIENT
  Sex: Male

DRUGS (15)
  1. IMBRUVICA [Concomitant]
     Active Substance: IBRUTINIB
     Indication: NON-HODGKIN^S LYMPHOMA
     Route: 048
     Dates: start: 20170925, end: 20180422
  2. MARINOL [Concomitant]
     Active Substance: DRONABINOL
  3. STOOL SOFTENER (DOCUSATE) [Concomitant]
     Active Substance: DOCUSATE
  4. KEPPRA [Concomitant]
     Active Substance: LEVETIRACETAM
  5. MAGNESIUM [Concomitant]
     Active Substance: MAGNESIUM
  6. FINASTERIDE. [Concomitant]
     Active Substance: FINASTERIDE
  7. LORAZEPAM. [Concomitant]
     Active Substance: LORAZEPAM
  8. SODIUM CHLORIDE. [Concomitant]
     Active Substance: SODIUM CHLORIDE
  9. VITAMIN B COMPLEX [Concomitant]
     Active Substance: CYANOCOBALAMIN\DEXPANTHENOL\NIACINAMIDE\PYRIDOXINE HYDROCHLORIDE\RIBOFLAVIN 5^-PHOSPHATE SODIUM\THIAMINE HYDROCHLORIDE\VITAMIN B COMPLEX
  10. LASIX [Concomitant]
     Active Substance: FUROSEMIDE
  11. ASPIRIN. [Concomitant]
     Active Substance: ASPIRIN
  12. FLOMAX [Concomitant]
     Active Substance: TAMSULOSIN HYDROCHLORIDE
  13. MELATONIN [Concomitant]
     Active Substance: MELATONIN
  14. MULTIVITAMINS [Concomitant]
     Active Substance: VITAMINS
  15. IMBRUVICA [Suspect]
     Active Substance: IBRUTINIB
     Indication: NON-HODGKIN^S LYMPHOMA
     Route: 048
     Dates: start: 20180423

REACTIONS (2)
  - Fracture [Unknown]
  - Fall [Unknown]
